APPROVED DRUG PRODUCT: ACYCLOVIR
Active Ingredient: ACYCLOVIR
Strength: 400MG
Dosage Form/Route: TABLET;ORAL
Application: A209366 | Product #001 | TE Code: AB
Applicant: SQUARE PHARMACEUTICALS LTD
Approved: Oct 7, 2019 | RLD: No | RS: No | Type: RX